FAERS Safety Report 21161423 (Version 1)
Quarter: 2022Q3

REPORT INFORMATION
  Report Type: Spontaneous
  Country: US (occurrence: None)
  Receive Date: 20220802
  Receipt Date: 20220802
  Transmission Date: 20221026
  Serious: Yes (Other)
  Sender: FDA-Public Use
  Company Number: None

PATIENT
  Sex: Female

DRUGS (17)
  1. MYCOPHENOLIC ACID [Suspect]
     Active Substance: MYCOPHENOLIC ACID
     Indication: Essential hypertension
     Dosage: 500MG ORAL?TAKE 2 TABLETS BY MOUTH TWICE DAILY
     Route: 048
     Dates: start: 20220706
  2. AZITHROMYCIN [Concomitant]
  3. FLOMAX CAP [Concomitant]
  4. HYDROCHLOROT TAB [Concomitant]
  5. HYDROCORT LOT [Concomitant]
  6. HYDROXYZ HCL TAB [Concomitant]
  7. HYDROXYZINE POW HCL [Concomitant]
  8. MOTRIN TAB [Concomitant]
  9. MULTIVAMIN TAB ADULTS [Concomitant]
  10. POTASSIUM TAB [Concomitant]
  11. PREDNISONE [Concomitant]
     Active Substance: PREDNISONE
  12. PREDNISONE [Concomitant]
     Active Substance: PREDNISONE
  13. SERTRALINE HYDROCHLORIDE [Concomitant]
     Active Substance: SERTRALINE HYDROCHLORIDE
  14. TRIAMCINOLON OIN [Concomitant]
  15. TYLENOL TAB [Concomitant]
  16. ZOLOFT [Concomitant]
     Active Substance: SERTRALINE HYDROCHLORIDE
  17. ALBUTEROL AER HFA [Concomitant]

REACTIONS (1)
  - Renal stone removal [None]
